FAERS Safety Report 7917811-8 (Version None)
Quarter: 2011Q4

REPORT INFORMATION
  Report Type: 
  Country: None (occurrence: None)
  Receive Date: 20111116
  Receipt Date: 20111101
  Transmission Date: 20120403
  Serious: Yes (Other)
  Sender: FDA-Public Use
  Company Number: PHHY2011US100240

PATIENT
  Age: 56 Year

DRUGS (4)
  1. GLEEVEC [Suspect]
     Dosage: UNK
     Route: 048
  2. PACLITAXEL [Suspect]
     Dosage: UNK
     Route: 042
  3. PACLITAXEL [Suspect]
     Indication: OVARIAN EPITHELIAL CANCER RECURRENT
     Dosage: 80 MG/M2, (AT THE INTERVAL OF 3, 10 AND 17 DAYS OF EACH EVERY 28 DAY CYCLE)
     Route: 042
  4. GLEEVEC [Suspect]
     Indication: OVARIAN EPITHELIAL CANCER RECURRENT
     Dosage: 300 MG, BID (AT THE INTERVAL OF 1-4, 8-11 AND 13-18 DAYS)
     Route: 048

REACTIONS (7)
  - NEOPLASM MALIGNANT [None]
  - NEUTROPHIL COUNT DECREASED [None]
  - OVARIAN EPITHELIAL CANCER RECURRENT [None]
  - NEUROPATHY PERIPHERAL [None]
  - TOXICITY TO VARIOUS AGENTS [None]
  - PLATELET COUNT DECREASED [None]
  - DRUG RESISTANCE [None]
